FAERS Safety Report 9169721 (Version 1)
Quarter: 2013Q1

REPORT INFORMATION
  Report Type: Spontaneous
  Country: JP (occurrence: JP)
  Receive Date: 20130318
  Receipt Date: 20130318
  Transmission Date: 20140127
  Serious: Yes (Death, Hospitalization)
  Sender: FDA-Public Use
  Company Number: PHHY2013JP025110

PATIENT
  Sex: Female

DRUGS (1)
  1. VALPROIC ACID [Suspect]
     Indication: EPILEPSY

REACTIONS (4)
  - Respiratory failure [Fatal]
  - Pyrexia [Unknown]
  - Convulsion [Unknown]
  - Drug ineffective [Unknown]
